FAERS Safety Report 15767876 (Version 1)
Quarter: 2018Q4

REPORT INFORMATION
  Report Type: Spontaneous
  Country: US (occurrence: US)
  Receive Date: 20181227
  Receipt Date: 20181227
  Transmission Date: 20190205
  Serious: Yes (Hospitalization)
  Sender: FDA-Public Use
  Company Number: US-PFIZER INC-2018531294

PATIENT
  Sex: Female

DRUGS (4)
  1. LEMTRADA [Concomitant]
     Active Substance: ALEMTUZUMAB
     Indication: MULTIPLE SCLEROSIS
     Dosage: 12 MG, DAILY, TIMES 5 DAYS
     Route: 042
     Dates: start: 20170801, end: 20170803
  2. LEMTRADA [Concomitant]
     Active Substance: ALEMTUZUMAB
     Dosage: 12 MG, DAILY, TIMES 3 DAYS
     Route: 042
     Dates: start: 20181128, end: 20181130
  3. LEMTRADA [Concomitant]
     Active Substance: ALEMTUZUMAB
     Dosage: 12 MG, DAILY, TIMES 5 DAYS
     Route: 042
     Dates: start: 20170807, end: 20170808
  4. SOLU-MEDROL [Suspect]
     Active Substance: METHYLPREDNISOLONE SODIUM SUCCINATE
     Dosage: UNK

REACTIONS (10)
  - Body temperature increased [Unknown]
  - Pruritus [Unknown]
  - Rash [Unknown]
  - Palpitations [Unknown]
  - Flushing [Unknown]
  - Photophobia [Unknown]
  - Malaise [Unknown]
  - Urticaria [Unknown]
  - Chest pain [Unknown]
  - Paraesthesia [Unknown]

NARRATIVE: CASE EVENT DATE: 20181129
